FAERS Safety Report 12263474 (Version 1)
Quarter: 2016Q2

REPORT INFORMATION
  Report Type: Spontaneous
  Country: US (occurrence: US)
  Receive Date: 20160413
  Receipt Date: 20160413
  Transmission Date: 20160815
  Serious: No
  Sender: FDA-Public Use
  Company Number: US-ASTRAZENECA-2016SE29182

PATIENT
  Sex: Male

DRUGS (2)
  1. BYDUREON [Suspect]
     Active Substance: EXENATIDE
     Indication: TYPE 2 DIABETES MELLITUS
     Dosage: 2 DF, UNKNOWN , PEN
     Route: 058
  2. BYDUREON [Suspect]
     Active Substance: EXENATIDE
     Indication: TYPE 2 DIABETES MELLITUS
     Dosage: KIT
     Route: 058

REACTIONS (4)
  - Drug dose omission [Unknown]
  - Injection site extravasation [Unknown]
  - Needle issue [Unknown]
  - Urticaria [Unknown]

NARRATIVE: CASE EVENT DATE: 201602
